FAERS Safety Report 11603698 (Version 2)
Quarter: 2015Q4

REPORT INFORMATION
  Report Type: Report from Study
  Country: US (occurrence: US)
  Receive Date: 20151007
  Receipt Date: 20151119
  Transmission Date: 20160304
  Serious: No
  Sender: FDA-Public Use
  Company Number: PHEH2015US019597

PATIENT
  Sex: Female
  Weight: 102 kg

DRUGS (2)
  1. VALSARTAN. [Suspect]
     Active Substance: VALSARTAN
     Indication: HYPERTENSION
     Dosage: 320 MG, QD
     Route: 065
  2. VALSARTAN. [Suspect]
     Active Substance: VALSARTAN
     Dosage: 50 MG, QD
     Route: 048
     Dates: start: 20150818, end: 20150930

REACTIONS (8)
  - Pyrexia [Unknown]
  - Asthenia [Unknown]
  - Abdominal discomfort [Unknown]
  - Influenza like illness [Unknown]
  - Discomfort [Unknown]
  - Dizziness [Unknown]
  - Abdominal pain [Unknown]
  - Fatigue [Unknown]
